FAERS Safety Report 15723128 (Version 1)
Quarter: 2018Q4

REPORT INFORMATION
  Report Type: Spontaneous
  Country: US (occurrence: US)
  Receive Date: 20181214
  Receipt Date: 20181214
  Transmission Date: 20190205
  Serious: Yes (Hospitalization)
  Sender: FDA-Public Use
  Company Number: US-BAYER-2018-228326

PATIENT
  Age: 29 Year
  Sex: Female

DRUGS (2)
  1. SERTRALINE [Concomitant]
     Active Substance: SERTRALINE HYDROCHLORIDE
     Dosage: 14 MCG/24HR, CONT
     Route: 015
     Dates: start: 20170902
  2. SKYLA [Suspect]
     Active Substance: LEVONORGESTREL
     Indication: INTRA-UTERINE CONTRACEPTIVE DEVICE
     Dosage: 14 MCG/24HR, CONT
     Route: 015
     Dates: start: 20160510, end: 20181130

REACTIONS (3)
  - Ectopic pregnancy with contraceptive device [None]
  - Tubal rupture [None]
  - Drug ineffective [None]

NARRATIVE: CASE EVENT DATE: 20181129
